FAERS Safety Report 8596994-3 (Version None)
Quarter: 2012Q3

REPORT INFORMATION
  Report Type: 
  Country: None (occurrence: None)
  Receive Date: 20120816
  Receipt Date: 20120809
  Transmission Date: 20120928
  Serious: Yes (Other)
  Sender: FDA-Public Use
  Company Number: AU-AMGEN-AUSSP2012047988

PATIENT
  Age: 47 Year
  Sex: Male
  Weight: 60.2 kg

DRUGS (1)
  1. ARANESP [Suspect]
     Indication: RENAL TRANSPLANT
     Dosage: 150 MUG, QWK
     Route: 058
     Dates: start: 20120723

REACTIONS (1)
  - APLASIA PURE RED CELL [None]
